FAERS Safety Report 5919011-X (Version None)
Quarter: 2008Q4

REPORT INFORMATION
  Report Type: 
  Country: None (occurrence: None)
  Receive Date: 20081014
  Receipt Date: 20081014
  Transmission Date: 20090506
  Serious: No
  Sender: FDA-Public Use
  Company Number: None

PATIENT
  Age: 53 Year
  Weight: 77.1115 kg

DRUGS (1)
  1. PREDNISONE [Suspect]
     Indication: CROHN'S DISEASE
     Dosage: 4 MG ONCE DAY PO
     Route: 048
     Dates: start: 20080508, end: 20081011

REACTIONS (1)
  - ALOPECIA [None]
